FAERS Safety Report 12902056 (Version 1)
Quarter: 2016Q4

REPORT INFORMATION
  Report Type: Spontaneous
  Country: US (occurrence: US)
  Receive Date: 20161102
  Receipt Date: 20161102
  Transmission Date: 20170207
  Serious: No
  Sender: FDA-Public Use
  Company Number: US-BEH-2016074620

PATIENT
  Age: 11 Year
  Sex: Female

DRUGS (1)
  1. STIMATE [Suspect]
     Active Substance: DESMOPRESSIN ACETATE
     Indication: COAGULOPATHY
     Dosage: 1 SPRAY INTO LEFT NOSTRIL, PRN
     Route: 045
     Dates: start: 20160914

REACTIONS (2)
  - Epistaxis [Unknown]
  - Nasal discomfort [Unknown]

NARRATIVE: CASE EVENT DATE: 20161019
